FAERS Safety Report 15930708 (Version 1)
Quarter: 2019Q1

REPORT INFORMATION
  Report Type: Spontaneous
  Country: US (occurrence: US)
  Receive Date: 20190207
  Receipt Date: 20190207
  Transmission Date: 20190417
  Serious: No
  Sender: FDA-Public Use
  Company Number: US-AMGEN-USASP2019016167

PATIENT
  Age: 68 Year
  Sex: Female

DRUGS (6)
  1. PROLIA [Suspect]
     Active Substance: DENOSUMAB
     Indication: OSTEOPOROSIS POSTMENOPAUSAL
     Dosage: UNK
     Route: 065
  2. BABY ASPIRIN [Concomitant]
     Active Substance: ASPIRIN
  3. DILTIAZEM. [Concomitant]
     Active Substance: DILTIAZEM
     Indication: CARDIAC MURMUR
  4. CALCIUM [Concomitant]
     Active Substance: CALCIUM
  5. SINGULAIR [Concomitant]
     Active Substance: MONTELUKAST SODIUM
     Indication: ASTHMA
  6. VITAMINS [Concomitant]
     Active Substance: VITAMINS

REACTIONS (4)
  - Tooth disorder [Unknown]
  - Endodontic procedure [Unknown]
  - Artificial crown procedure [Unknown]
  - Device breakage [Unknown]
